FAERS Safety Report 16972037 (Version 1)
Quarter: 2019Q4

REPORT INFORMATION
  Report Type: Spontaneous
  Country: US (occurrence: US)
  Receive Date: 20191029
  Receipt Date: 20191029
  Transmission Date: 20200122
  Serious: Yes (Life-Threatening, Other)
  Sender: FDA-Public Use
  Company Number: US-FRESENIUS KABI-FK201911913

PATIENT
  Age: 63 Year
  Sex: Male

DRUGS (1)
  1. HEPARIN (MANUFACTURER UNKNOWN) [Suspect]
     Active Substance: HEPARIN SODIUM
     Indication: THROMBOSIS
     Dosage: UNKNOWN
     Route: 065

REACTIONS (3)
  - Splenic haematoma [Unknown]
  - Splenic rupture [Unknown]
  - Condition aggravated [Unknown]
